FAERS Safety Report 16166135 (Version 1)
Quarter: 2019Q2

REPORT INFORMATION
  Report Type: Spontaneous
  Country: FR (occurrence: FR)
  Receive Date: 20190406
  Receipt Date: 20190406
  Transmission Date: 20190711
  Serious: Yes (Hospitalization, Other)
  Sender: FDA-Public Use
  Company Number: FR-ACCORD-118927

PATIENT
  Age: 57 Year
  Sex: Female
  Weight: 56 kg

DRUGS (10)
  1. AMLODIPINE [Suspect]
     Active Substance: AMLODIPINE BESYLATE
     Route: 048
     Dates: start: 20180903, end: 20180903
  2. VALSARTAN. [Suspect]
     Active Substance: VALSARTAN
     Route: 048
     Dates: start: 20180903, end: 20180903
  3. BENERVA [Concomitant]
     Active Substance: THIAMINE HYDROCHLORIDE
  4. NALTREXONE [Concomitant]
     Active Substance: NALTREXONE
  5. FLUOXETINE [Suspect]
     Active Substance: FLUOXETINE HYDROCHLORIDE
     Route: 048
     Dates: start: 20180903, end: 20180903
  6. DOXYLAMINE/DOXYLAMINE SUCCINATE [Suspect]
     Active Substance: DOXYLAMINE SUCCINATE
     Route: 048
     Dates: start: 20180903, end: 20180903
  7. IMOVANE [Concomitant]
     Active Substance: ZOPICLONE
  8. ATENOLOL/ATENOLOL HYDROCHLORIDE [Suspect]
     Active Substance: ATENOLOL HYDROCHLORIDE
     Route: 048
     Dates: start: 20180903, end: 20180903
  9. ACAMPROSATE BIOGARAN [Suspect]
     Active Substance: ACAMPROSATE CALCIUM
     Route: 048
     Dates: start: 20180903, end: 20180903
  10. PREGABALIN. [Suspect]
     Active Substance: PREGABALIN
     Route: 048
     Dates: start: 20180903, end: 20180903

REACTIONS (3)
  - Intentional overdose [Unknown]
  - Seizure [Recovered/Resolved]
  - Coma [Recovered/Resolved]

NARRATIVE: CASE EVENT DATE: 20180903
